FAERS Safety Report 7043803-X (Version None)
Quarter: 2010Q4

REPORT INFORMATION
  Report Type: 
  Country: None (occurrence: None)
  Receive Date: 20101002
  Receipt Date: 20101002
  Transmission Date: 20110411
  Serious: Yes (Life-Threatening, Hospitalization, Disabling)
  Sender: FDA-Public Use
  Company Number: None

PATIENT
  Age: 68 Year
  Sex: Female
  Weight: 92.5338 kg

DRUGS (1)
  1. BEVACIZUMAB [Suspect]
     Indication: BREAST CANCER STAGE IV
     Dosage: 1500 MGM Q 2 WEEKS IV
     Route: 042
     Dates: start: 20100423

REACTIONS (1)
  - BOWEL PREPARATION [None]
